FAERS Safety Report 23981631 (Version 1)
Quarter: 2024Q2

REPORT INFORMATION
  Report Type: Spontaneous
  Country: ES (occurrence: ES)
  Receive Date: 20240617
  Receipt Date: 20240617
  Transmission Date: 20240716
  Serious: Yes (Other)
  Sender: FDA-Public Use
  Company Number: None

PATIENT
  Age: 27 Year
  Sex: Female

DRUGS (2)
  1. SUMATRIPTAN [Interacting]
     Active Substance: SUMATRIPTAN
     Indication: Migraine
     Dosage: UNK
     Route: 065
     Dates: start: 20240317, end: 20240317
  2. FLUOXETINE [Interacting]
     Active Substance: FLUOXETINE HYDROCHLORIDE
     Indication: Anxiety
     Dosage: UNK
     Route: 065
     Dates: start: 20240316, end: 20240317

REACTIONS (3)
  - Serotonin syndrome [Unknown]
  - Diarrhoea [Unknown]
  - Drug interaction [Unknown]

NARRATIVE: CASE EVENT DATE: 20240317
